FAERS Safety Report 24526916 (Version 2)
Quarter: 2024Q4

REPORT INFORMATION
  Report Type: Report from Study
  Country: ZA (occurrence: ZA)
  Receive Date: 20241021
  Receipt Date: 20241021
  Transmission Date: 20250115
  Serious: Yes (Life-Threatening, Hospitalization)
  Sender: ROCHE
  Company Number: ZA-ROCHE-10000103753

PATIENT
  Age: 34 Year
  Sex: Male

DRUGS (2)
  1. OCREVUS [Suspect]
     Active Substance: OCRELIZUMAB
     Indication: Multiple sclerosis
     Dosage: FIRST DOSE
     Route: 042
     Dates: start: 20241008
  2. OCREVUS [Suspect]
     Active Substance: OCRELIZUMAB
     Dosage: THERE AFTER 600MG EVERY 6 MONTHS
     Route: 042
     Dates: start: 20241008

REACTIONS (2)
  - Hypersensitivity [Unknown]
  - Epilepsy [Unknown]

NARRATIVE: CASE EVENT DATE: 20241008
